FAERS Safety Report 4607673-9 (Version None)
Quarter: 2005Q2

REPORT INFORMATION
  Report Type: 
  Country: None (occurrence: None)
  Receive Date: 20050228
  Receipt Date: 20050105
  Transmission Date: 20051028
  Serious: No
  Sender: FDA-Public Use
  Company Number: FABR-10852

PATIENT
  Age: 34 Year
  Sex: Male
  Weight: 104.3273 kg

DRUGS (7)
  1. FABRAZYME [Suspect]
     Indication: FABRY'S DISEASE
     Dosage: 105 MG Q2WKS IV
     Route: 042
     Dates: start: 20040517
  2. ADVAIR DISKUS 100/50 [Concomitant]
  3. ALBUTEROL [Concomitant]
  4. BENICAR [Concomitant]
  5. TEGRETOL [Concomitant]
  6. OXYCONTIN [Concomitant]
  7. HYDROCODONE BITARTRATE [Concomitant]

REACTIONS (1)
  - ACNE [None]
